FAERS Safety Report 12179664 (Version 2)
Quarter: 2016Q1

REPORT INFORMATION
  Report Type: Spontaneous
  Country: US (occurrence: US)
  Receive Date: 20160314
  Receipt Date: 20160317
  Transmission Date: 20160526
  Serious: Yes (Other)
  Sender: FDA-Public Use
  Company Number: US-BAUSCH-BL-2016-005906

PATIENT
  Sex: Female

DRUGS (4)
  1. FLUOROURACIL. [Suspect]
     Active Substance: FLUOROURACIL
     Indication: MATERNAL EXPOSURE TIMING UNSPECIFIED
     Route: 064
  2. OXALIPLATIN. [Suspect]
     Active Substance: OXALIPLATIN
     Indication: MATERNAL EXPOSURE TIMING UNSPECIFIED
     Route: 064
  3. IRINOTECAN [Suspect]
     Active Substance: IRINOTECAN
     Indication: MATERNAL EXPOSURE TIMING UNSPECIFIED
     Route: 064
  4. FOLINIC ACID [Suspect]
     Active Substance: LEUCOVORIN
     Indication: MATERNAL EXPOSURE TIMING UNSPECIFIED
     Route: 064

REACTIONS (3)
  - Lymphopenia [Recovered/Resolved]
  - Product use issue [Unknown]
  - Cytology abnormal [Recovering/Resolving]
